FAERS Safety Report 14485404 (Version 1)
Quarter: 2018Q1

REPORT INFORMATION
  Report Type: Spontaneous
  Country: US (occurrence: US)
  Receive Date: 20180205
  Receipt Date: 20180205
  Transmission Date: 20180509
  Serious: Yes (Other)
  Sender: FDA-Public Use
  Company Number: US-PFIZER INC-2018049151

PATIENT
  Age: 42 Year
  Sex: Female
  Weight: 48.53 kg

DRUGS (3)
  1. GABAPENTIN. [Suspect]
     Active Substance: GABAPENTIN
     Dosage: UNK
  2. LYRICA [Suspect]
     Active Substance: PREGABALIN
     Indication: FIBROMYALGIA
     Dosage: 75 MG, 3X/DAY
     Route: 048
  3. LEVOTHYROXINE. [Concomitant]
     Active Substance: LEVOTHYROXINE
     Indication: THYROID DISORDER
     Dosage: UNK

REACTIONS (10)
  - Fracture [Unknown]
  - Amnesia [Unknown]
  - Anxiety [Unknown]
  - Constipation [Unknown]
  - Neoplasm malignant [Unknown]
  - Sleep disorder [Unknown]
  - Vomiting [Unknown]
  - Weight decreased [Unknown]
  - Depression [Unknown]
  - Therapeutic response unexpected [Unknown]
